FAERS Safety Report 8018148-1 (Version None)
Quarter: 2011Q4

REPORT INFORMATION
  Report Type: 
  Country: None (occurrence: None)
  Receive Date: 20111227
  Receipt Date: 20111209
  Transmission Date: 20120403
  Serious: Yes (Hospitalization)
  Sender: FDA-Public Use
  Company Number: 2011AP003008

PATIENT
  Age: 40 Year
  Sex: Male

DRUGS (7)
  1. RISPERIDONE [Suspect]
     Indication: SCHIZOAFFECTIVE DISORDER BIPOLAR TYPE
     Dosage: 2 MG,HS, 4 MG,QD, 6 MG,HS
  2. LITHIUM CARBONATE [Suspect]
     Indication: SCHIZOAFFECTIVE DISORDER BIPOLAR TYPE
     Dosage: 300 MG,TID
  3. CLOZAPINE [Suspect]
     Indication: SCHIZOAFFECTIVE DISORDER BIPOLAR TYPE
     Dosage: 100 MG,AM, 175 MG,HS
  4. HALOPERIDOL DECANOATE INJECTION (HALOPERIDOL DECANOATE) [Concomitant]
  5. HALOPERIDOL DECANOATE INJECTION (HALOPERIDOL DECANOATE) [Concomitant]
  6. VALPROATE SODIUM [Concomitant]
  7. OXCARBAZEPINE [Concomitant]

REACTIONS (15)
  - BLOOD CHLORIDE DECREASED [None]
  - PSYCHOTIC DISORDER [None]
  - BLOOD PHOSPHORUS INCREASED [None]
  - SALIVARY HYPERSECRETION [None]
  - CHOLELITHIASIS [None]
  - BLOOD CREATININE INCREASED [None]
  - FLATULENCE [None]
  - TACHYCARDIA [None]
  - HEPATOMEGALY [None]
  - CONSTIPATION [None]
  - BLOOD SODIUM DECREASED [None]
  - PANCREATITIS CHRONIC [None]
  - DISEASE RECURRENCE [None]
  - GRANULOCYTOSIS [None]
  - BLOOD CALCIUM INCREASED [None]
